FAERS Safety Report 21540023 (Version 2)
Quarter: 2022Q4

REPORT INFORMATION
  Report Type: Other
  Country: JP (occurrence: JP)
  Receive Date: 20221102
  Receipt Date: 20221212
  Transmission Date: 20230113
  Serious: Yes (Other)
  Sender: FDA-Public Use
  Company Number: JP-CHUGAI-2022042616

PATIENT
  Age: 3 Year
  Sex: Male

DRUGS (1)
  1. EMICIZUMAB [Suspect]
     Active Substance: EMICIZUMAB
     Indication: Haemophilia A with anti factor VIII
     Dosage: 3 MILLIGRAM/KILOGRAM, ONCE/2WEEKS
     Route: 058
     Dates: start: 20210804

REACTIONS (1)
  - Haemorrhage [Recovered/Resolved]
